FAERS Safety Report 9243189 (Version 1)
Quarter: 2013Q2

REPORT INFORMATION
  Report Type: Spontaneous
  Country: FR (occurrence: FR)
  Receive Date: 20130419
  Receipt Date: 20130419
  Transmission Date: 20140414
  Serious: Yes (Life-Threatening, Hospitalization)
  Sender: FDA-Public Use
  Company Number: PHHY2013FR038223

PATIENT
  Sex: Female
  Weight: 65 kg

DRUGS (2)
  1. LEELOO [Suspect]
     Indication: CONTRACEPTION
     Dosage: UNK
     Route: 048
     Dates: end: 20120924
  2. COUMADINE [Concomitant]

REACTIONS (3)
  - Pleural effusion [Recovering/Resolving]
  - Pulmonary embolism [Recovering/Resolving]
  - Pelvic venous thrombosis [Recovering/Resolving]
